FAERS Safety Report 6029805-0 (Version None)
Quarter: 2009Q1

REPORT INFORMATION
  Report Type: 
  Country: None (occurrence: None)
  Receive Date: 20090107
  Receipt Date: 20090105
  Transmission Date: 20090719
  Serious: Yes (Other)
  Sender: FDA-Public Use
  Company Number: GB-ASTRAZENECA-2009GB00123

PATIENT
  Age: 18950 Day
  Sex: Female

DRUGS (4)
  1. FULVESTRANT [Suspect]
     Indication: BREAST CANCER
     Route: 030
     Dates: start: 20081222
  2. PARACETAMOL [Concomitant]
  3. IBUPROFEN TABLETS [Concomitant]
  4. IBANDRONATE [Concomitant]

REACTIONS (9)
  - ARTHRALGIA [None]
  - BACK PAIN [None]
  - BLOOD CREATININE INCREASED [None]
  - DIARRHOEA [None]
  - HEADACHE [None]
  - MYALGIA [None]
  - ORAL HERPES [None]
  - PYREXIA [None]
  - THROMBOCYTOPENIA [None]
